FAERS Safety Report 7269095-4 (Version None)
Quarter: 2011Q1

REPORT INFORMATION
  Report Type: 
  Country: None (occurrence: None)
  Receive Date: 20110202
  Receipt Date: 20110124
  Transmission Date: 20110831
  Serious: No
  Sender: FDA-Public Use
  Company Number: US-BIOGENIDEC-2011BI002885

PATIENT
  Age: 33 Year
  Sex: Male

DRUGS (3)
  1. KLONOPIN [Concomitant]
     Indication: TREMOR
  2. TYSABRI [Suspect]
     Indication: MULTIPLE SCLEROSIS
     Route: 042
     Dates: start: 20100304
  3. AMPYRA [Concomitant]
     Indication: PRODUCT USED FOR UNKNOWN INDICATION
     Dates: start: 20101101

REACTIONS (2)
  - MUSCULAR WEAKNESS [None]
  - TREMOR [None]
